FAERS Safety Report 4713132-5 (Version None)
Quarter: 2005Q3

REPORT INFORMATION
  Report Type: 
  Country: None (occurrence: None)
  Receive Date: 20050713
  Receipt Date: 20050713
  Transmission Date: 20060218
  Serious: Yes (Death)
  Sender: FDA-Public Use
  Company Number: None

PATIENT
  Age: 62 Year
  Sex: Female

DRUGS (1)
  1. MEGACE [Suspect]
     Indication: WEIGHT DECREASED
     Dosage: 20 ML DAILY
     Dates: start: 20050513, end: 20050618

REACTIONS (1)
  - DEATH [None]
